FAERS Safety Report 16685669 (Version 2)
Quarter: 2019Q3

REPORT INFORMATION
  Report Type: Spontaneous
  Country: US (occurrence: US)
  Receive Date: 20190809
  Receipt Date: 20190903
  Transmission Date: 20191004
  Serious: No
  Sender: FDA-Public Use
  Company Number: US-SA-2019SA213916

PATIENT
  Sex: Female

DRUGS (2)
  1. COUMADIN [Suspect]
     Active Substance: WARFARIN SODIUM
     Indication: DEEP VEIN THROMBOSIS
     Dosage: UNK UNK, UNK
     Route: 065
  2. ENOXAPARIN SODIUM - WINTHROP [Suspect]
     Active Substance: ENOXAPARIN SODIUM
     Indication: DEEP VEIN THROMBOSIS
     Dosage: 100 MG, BID
     Route: 065
     Dates: start: 20190730, end: 20190801

REACTIONS (3)
  - Rash papular [Unknown]
  - Needle issue [Unknown]
  - Incorrect dose administered [Unknown]
